FAERS Safety Report 9296226 (Version 1)
Quarter: 2013Q2

REPORT INFORMATION
  Report Type: Spontaneous
  Country: IT (occurrence: None)
  Receive Date: 20130514
  Receipt Date: 20130514
  Transmission Date: 20140414
  Serious: Yes (Hospitalization)
  Sender: FDA-Public Use
  Company Number: SYN-0484-2013

PATIENT
  Age: 16 Year
  Sex: Male

DRUGS (6)
  1. LEVOCETIRIZINE [Suspect]
     Indication: PRODUCT USED FOR UNKNOWN INDICATION
     Route: 048
     Dates: end: 20130218
  2. RAMIPRIL [Concomitant]
  3. ZITHROMAX [Concomitant]
  4. PARACETAMOL [Concomitant]
  5. ALMOTRIPTAN [Concomitant]
  6. PURSENNID [Concomitant]

REACTIONS (3)
  - Intentional self-injury [None]
  - Confusional state [None]
  - Sopor [None]
